FAERS Safety Report 4423829-2 (Version None)
Quarter: 2004Q3

REPORT INFORMATION
  Report Type: 
  Country: None (occurrence: None)
  Receive Date: 20040715
  Receipt Date: 20030730
  Transmission Date: 20050211
  Serious: Yes (Other)
  Sender: FDA-Public Use
  Company Number: 2003170590US

PATIENT
  Sex: Female

DRUGS (2)
  1. DEPO-MEDROL [Suspect]
     Indication: SPINAL COLUMN STENOSIS
     Dosage: 100 MG, SINGLE
     Dates: start: 20030623, end: 20030623
  2. LIDOCAINE [Suspect]
     Indication: SPINAL COLUMN STENOSIS
     Dosage: 2 ML 1%, SINGLE

REACTIONS (2)
  - ASTHENIA [None]
  - MEDICATION ERROR [None]
